FAERS Safety Report 16368157 (Version 1)
Quarter: 2019Q2

REPORT INFORMATION
  Report Type: Spontaneous
  Country: FR (occurrence: FR)
  Receive Date: 20190529
  Receipt Date: 20190529
  Transmission Date: 20190711
  Serious: Yes (Hospitalization)
  Sender: FDA-Public Use
  Company Number: FR-MYLANLABS-2019M1050077

PATIENT
  Age: 56 Year
  Sex: Female
  Weight: 67 kg

DRUGS (3)
  1. CODOLIPRANE [Suspect]
     Active Substance: ACETAMINOPHEN\CODEINE PHOSPHATE
     Indication: BACK PAIN
     Dosage: 2 GRAM, QD
     Route: 048
     Dates: start: 20180912, end: 20180919
  2. TRANXENE [Suspect]
     Active Substance: CLORAZEPATE DIPOTASSIUM
     Indication: BACK PAIN
     Dosage: UNK,CF COMMENTAIRES
     Route: 048
     Dates: start: 20180912, end: 20180919
  3. TRAMADOL. [Suspect]
     Active Substance: TRAMADOL
     Indication: BACK PAIN
     Dosage: UNK,NON PR?CIS?E
     Route: 048
     Dates: start: 20180912, end: 20180919

REACTIONS (2)
  - General physical health deterioration [Recovered/Resolved]
  - Neurological decompensation [Recovered/Resolved]

NARRATIVE: CASE EVENT DATE: 20180914
